FAERS Safety Report 13079314 (Version 2)
Quarter: 2017Q1

REPORT INFORMATION
  Report Type: Report from Study
  Country: None (occurrence: US)
  Receive Date: 20170103
  Receipt Date: 20170220
  Transmission Date: 20170428
  Serious: Yes (Hospitalization, Other)
  Sender: FDA-Public Use
  Company Number: US-ABBVIE-16K-163-1825550-00

PATIENT
  Age: 47 Year
  Sex: Male
  Weight: 106.69 kg

DRUGS (7)
  1. HUMIRA [Suspect]
     Active Substance: ADALIMUMAB
     Indication: CROHN^S DISEASE
     Route: 058
     Dates: start: 201509, end: 201701
  2. METFORMIN [Concomitant]
     Active Substance: METFORMIN HYDROCHLORIDE
     Indication: TYPE 2 DIABETES MELLITUS
  3. TRAVATAN [Concomitant]
     Active Substance: TRAVOPROST
     Indication: GLAUCOMA
  4. ADVIL [Concomitant]
     Active Substance: IBUPROFEN
     Indication: PAIN
  5. COSOPT [Concomitant]
     Active Substance: DORZOLAMIDE HYDROCHLORIDE\TIMOLOL MALEATE
     Indication: GLAUCOMA
  6. NORVASC [Concomitant]
     Active Substance: AMLODIPINE BESYLATE
     Indication: HYPERTENSION
  7. IMURAN [Concomitant]
     Active Substance: AZATHIOPRINE
     Indication: CROHN^S DISEASE

REACTIONS (10)
  - Intestinal ulcer [Unknown]
  - Abdominal pain [Recovering/Resolving]
  - Intestinal haemorrhage [Recovered/Resolved]
  - Gastrointestinal inflammation [Unknown]
  - Anaemia [Recovering/Resolving]
  - Drug specific antibody present [Unknown]
  - Drug effect incomplete [Not Recovered/Not Resolved]
  - Diarrhoea [Recovering/Resolving]
  - Intestinal obstruction [Recovered/Resolved]
  - Vitamin D deficiency [Unknown]

NARRATIVE: CASE EVENT DATE: 2016
